FAERS Safety Report 13338649 (Version 1)
Quarter: 2017Q1

REPORT INFORMATION
  Report Type: Other
  Country: DK (occurrence: DK)
  Receive Date: 20170315
  Receipt Date: 20170315
  Transmission Date: 20170428
  Serious: Yes (Other)
  Sender: FDA-Public Use
  Company Number: DK-ASTELLAS-2017US009705

PATIENT
  Age: 36 Year
  Sex: Male
  Weight: 65 kg

DRUGS (6)
  1. NOXAFIL [Interacting]
     Active Substance: POSACONAZOLE
     Dosage: 900 MG (3 X 300MG), ONCE DAILY
     Route: 048
     Dates: start: 20160903, end: 20161011
  2. NOXAFIL [Interacting]
     Active Substance: POSACONAZOLE
     Indication: MUCORMYCOSIS
     Route: 042
  3. CHOLESTEROL [Concomitant]
     Active Substance: CHOLESTEROL
     Indication: PRODUCT USED FOR UNKNOWN INDICATION
     Dosage: UNK UNK, UNKNOWN FREQ.
     Route: 065
  4. AMBISOME [Suspect]
     Active Substance: AMPHOTERICIN B
     Indication: MUCORMYCOSIS
     Dosage: UNK, UNKNOWN FREQ.
     Route: 065
     Dates: start: 20160308
  5. NOXAFIL [Interacting]
     Active Substance: POSACONAZOLE
     Indication: MUCORMYCOSIS
     Dosage: 400 MG (2 X 200MG), ONCE DAILY
     Route: 048
     Dates: start: 20160506, end: 20160903
  6. VITAMIN E                          /00110501/ [Concomitant]
     Active Substance: TOCOPHEROL
     Indication: PRODUCT USED FOR UNKNOWN INDICATION
     Dosage: UNK UNK, UNKNOWN FREQ.
     Route: 065

REACTIONS (8)
  - Dialysis [Not Recovered/Not Resolved]
  - Gastrointestinal tube insertion [Unknown]
  - Drug interaction [Unknown]
  - Gastrointestinal disorder [Unknown]
  - Drug level below therapeutic [Unknown]
  - Blood alkaline phosphatase increased [Unknown]
  - Drug level above therapeutic [Unknown]
  - Prescribed overdose [Unknown]

NARRATIVE: CASE EVENT DATE: 2016
